FAERS Safety Report 24098558 (Version 1)
Quarter: 2024Q3

REPORT INFORMATION
  Report Type: Spontaneous
  Country: RU (occurrence: RU)
  Receive Date: 20240716
  Receipt Date: 20240716
  Transmission Date: 20241017
  Serious: Yes (Hospitalization, Other)
  Sender: VERTEX
  Company Number: RU-VERTEX PHARMACEUTICALS-2024-011378

PATIENT
  Sex: Female

DRUGS (1)
  1. ORKAMBI [Suspect]
     Active Substance: IVACAFTOR\LUMACAFTOR
     Indication: Cystic fibrosis
     Dosage: 200 MG LUMACAFTOR/125 MG IVACAFTOR
     Route: 048
     Dates: start: 20220811, end: 20221212

REACTIONS (13)
  - Pseudomembranous colitis [Recovered/Resolved]
  - Septic shock [Recovered/Resolved]
  - Multiple organ dysfunction syndrome [Recovered/Resolved]
  - Disseminated intravascular coagulation [Recovered/Resolved]
  - Pulmonary fibrosis [Unknown]
  - General physical health deterioration [Recovering/Resolving]
  - Ischaemic stroke [Unknown]
  - Epilepsy [Recovered/Resolved]
  - Anaemia [Unknown]
  - Coronavirus infection [Recovered/Resolved]
  - Lymphadenopathy [Unknown]
  - Genitourinary tract infection [Unknown]
  - Pneumonia [Recovering/Resolving]

NARRATIVE: CASE EVENT DATE: 20220101
